FAERS Safety Report 20394381 (Version 5)
Quarter: 2022Q3

REPORT INFORMATION
  Report Type: Spontaneous
  Country: GB (occurrence: GB)
  Receive Date: 20220129
  Receipt Date: 20220830
  Transmission Date: 20221027
  Serious: Yes (Death, Hospitalization)
  Sender: FDA-Public Use
  Company Number: GB-ROCHE-2844793

PATIENT
  Age: 53 Year
  Sex: Female

DRUGS (49)
  1. CAPECITABINE [Suspect]
     Active Substance: CAPECITABINE
     Indication: Breast cancer metastatic
     Route: 048
     Dates: start: 20201211, end: 20210120
  2. CAPECITABINE [Suspect]
     Active Substance: CAPECITABINE
     Route: 048
     Dates: start: 20210121, end: 202106
  3. NERATINIB [Suspect]
     Active Substance: NERATINIB
     Indication: Breast cancer metastatic
     Route: 048
     Dates: start: 20210202, end: 20210224
  4. NERATINIB [Suspect]
     Active Substance: NERATINIB
     Route: 048
     Dates: start: 20210514, end: 202105
  5. NERATINIB [Suspect]
     Active Substance: NERATINIB
     Route: 048
     Dates: start: 20210225, end: 20210409
  6. NERATINIB [Suspect]
     Active Substance: NERATINIB
     Route: 048
     Dates: start: 20210121, end: 20210201
  7. NERATINIB [Suspect]
     Active Substance: NERATINIB
     Route: 048
     Dates: start: 202105, end: 202106
  8. TRASTUZUMAB [Suspect]
     Active Substance: TRASTUZUMAB
     Indication: Breast cancer metastatic
     Route: 058
     Dates: start: 20160506, end: 20180122
  9. TRASTUZUMAB DERUXTECAN [Suspect]
     Active Substance: TRASTUZUMAB DERUXTECAN
     Indication: Breast cancer metastatic
     Route: 042
     Dates: start: 20211022, end: 20211202
  10. ADO-TRASTUZUMAB EMTANSINE [Suspect]
     Active Substance: ADO-TRASTUZUMAB EMTANSINE
     Indication: Breast cancer metastatic
     Route: 042
     Dates: start: 20180309, end: 20201106
  11. COCODAMOL [Concomitant]
     Active Substance: ACETAMINOPHEN\CODEINE PHOSPHATE
     Indication: Somnolence
     Route: 048
     Dates: start: 20210112, end: 20210112
  12. OMEPRAZOLE [Concomitant]
     Active Substance: OMEPRAZOLE
     Indication: Somnolence
     Route: 048
     Dates: start: 20180212, end: 20180214
  13. OMEPRAZOLE [Concomitant]
     Active Substance: OMEPRAZOLE
     Route: 048
     Dates: start: 20211014
  14. OMEPRAZOLE [Concomitant]
     Active Substance: OMEPRAZOLE
     Route: 042
     Dates: start: 20211012
  15. CEFUROXIME [Concomitant]
     Active Substance: CEFUROXIME
     Indication: Product used for unknown indication
     Route: 042
     Dates: start: 20180212, end: 20180212
  16. SODIUM FLUORIDE [Concomitant]
     Active Substance: SODIUM FLUORIDE
     Indication: Product used for unknown indication
     Route: 048
     Dates: start: 20210202
  17. SODIUM FLUORIDE [Concomitant]
     Active Substance: SODIUM FLUORIDE
     Route: 048
     Dates: start: 20200211
  18. CYCLIZINE [Concomitant]
     Active Substance: CYCLIZINE
     Indication: Pneumonitis
     Route: 042
     Dates: start: 20180212, end: 20180212
  19. DEXAMETHASONE [Concomitant]
     Active Substance: DEXAMETHASONE
     Indication: Product used for unknown indication
     Route: 065
     Dates: start: 20211013, end: 20211013
  20. DEXAMETHASONE [Concomitant]
     Active Substance: DEXAMETHASONE
     Route: 048
     Dates: start: 201802, end: 201803
  21. DEXAMETHASONE [Concomitant]
     Active Substance: DEXAMETHASONE
     Route: 048
     Dates: start: 20180214, end: 20180214
  22. DEXAMETHASONE [Concomitant]
     Active Substance: DEXAMETHASONE
     Route: 048
     Dates: start: 20211014
  23. DEXAMETHASONE [Concomitant]
     Active Substance: DEXAMETHASONE
     Route: 048
     Dates: start: 20180212, end: 20180213
  24. DEXAMETHASONE [Concomitant]
     Active Substance: DEXAMETHASONE
     Route: 065
     Dates: start: 20211012, end: 20211012
  25. DEXAMETHASONE [Concomitant]
     Active Substance: DEXAMETHASONE
     Dosage: IN GLUCOSE 5 PERCENT 100MLS OTHER PRIOR TO CHEMOTHERAPY, OVER 15MINS
     Route: 042
     Dates: start: 20210122, end: 20210122
  26. DEXTROSE [Concomitant]
     Active Substance: DEXTROSE
     Indication: Product used for unknown indication
     Route: 042
     Dates: start: 20211014, end: 20211014
  27. ELECTROLYTES NOS [Concomitant]
     Active Substance: ELECTROLYTES NOS
     Indication: Product used for unknown indication
     Route: 042
     Dates: start: 20211014, end: 20211014
  28. LOPERAMIDE [Concomitant]
     Active Substance: LOPERAMIDE
     Indication: Product used for unknown indication
     Route: 048
     Dates: start: 20201211
  29. METOCLOPRAMIDE [Concomitant]
     Active Substance: METOCLOPRAMIDE
     Indication: Product used for unknown indication
     Route: 048
     Dates: start: 20201211
  30. MORPHINE [Concomitant]
     Active Substance: MORPHINE
     Indication: Product used for unknown indication
     Route: 042
     Dates: start: 20180212, end: 20180212
  31. MORPHINE SULFATE [Concomitant]
     Active Substance: MORPHINE SULFATE
     Indication: Product used for unknown indication
     Route: 048
     Dates: start: 20211015
  32. SODIUM CHLORIDE [Concomitant]
     Active Substance: SODIUM CHLORIDE
     Indication: Product used for unknown indication
     Route: 042
     Dates: start: 20211012, end: 20211013
  33. SODIUM CHLORIDE [Concomitant]
     Active Substance: SODIUM CHLORIDE
     Route: 042
     Dates: start: 20180212, end: 20180212
  34. ACETAMINOPHEN [Concomitant]
     Active Substance: ACETAMINOPHEN
     Indication: Product used for unknown indication
     Route: 048
     Dates: start: 202110, end: 202110
  35. ACETAMINOPHEN [Concomitant]
     Active Substance: ACETAMINOPHEN
     Route: 042
     Dates: start: 20180212, end: 20180212
  36. ACETAMINOPHEN [Concomitant]
     Active Substance: ACETAMINOPHEN
     Route: 048
     Dates: start: 20180212, end: 20180214
  37. MAGNESIUM CHLORIDE [Concomitant]
     Active Substance: MAGNESIUM CHLORIDE
     Indication: Product used for unknown indication
     Route: 042
     Dates: start: 20180212, end: 20180212
  38. POTASSIUM CHLORIDE [Concomitant]
     Active Substance: POTASSIUM CHLORIDE
     Indication: Product used for unknown indication
     Route: 042
     Dates: start: 20180212, end: 20180212
  39. SODIUM ACETATE [Concomitant]
     Active Substance: SODIUM ACETATE
     Indication: Product used for unknown indication
     Route: 042
     Dates: start: 20180212, end: 20180212
  40. SODIUM GLUCONATE [Concomitant]
     Active Substance: SODIUM GLUCONATE
     Indication: Pneumonitis
     Route: 042
     Dates: start: 20180212, end: 20180212
  41. ZOLEDRONIC ACID [Concomitant]
     Active Substance: ZOLEDRONIC ACID
     Indication: Product used for unknown indication
     Route: 042
     Dates: start: 20170102, end: 20170102
  42. FLUCLOXACILLIN [Concomitant]
     Active Substance: FLUCLOXACILLIN
     Indication: Pneumonitis
     Route: 048
     Dates: start: 20211208, end: 20211213
  43. GENTAMICIN [Concomitant]
     Active Substance: GENTAMICIN
     Indication: Product used for unknown indication
     Route: 042
     Dates: start: 20211130, end: 20211130
  44. POLYETHYLENE GLYCOL 3350\POTASSIUM CHLORIDE\SODIUM BICARBONATE\SODIUM [Concomitant]
     Active Substance: POLYETHYLENE GLYCOL 3350\POTASSIUM CHLORIDE\SODIUM BICARBONATE\SODIUM CHLORIDE
     Indication: Pneumonitis
     Route: 048
     Dates: start: 20211209, end: 20211214
  45. METHYLPREDNISOLONE SODIUM SUCCINATE [Concomitant]
     Active Substance: METHYLPREDNISOLONE SODIUM SUCCINATE
     Indication: Pneumonitis
     Route: 042
     Dates: start: 20211212, end: 20211213
  46. MIDAZOLAM [Concomitant]
     Active Substance: MIDAZOLAM
     Indication: Pneumonitis
     Route: 058
     Dates: start: 20211208, end: 20211214
  47. MIDAZOLAM [Concomitant]
     Active Substance: MIDAZOLAM
     Route: 058
     Dates: start: 20211213, end: 20211214
  48. PIPERACILLIN AND TAZOBACTAM [Concomitant]
     Active Substance: PIPERACILLIN SODIUM\TAZOBACTAM SODIUM
     Indication: Pneumonitis
     Route: 042
     Dates: start: 20211130, end: 20211130
  49. SENNOSIDES [Concomitant]
     Active Substance: SENNOSIDES
     Indication: Pneumonitis
     Route: 048
     Dates: start: 20211209, end: 20211213

REACTIONS (5)
  - Pneumonitis [Fatal]
  - Pulmonary embolism [Fatal]
  - Somnolence [Recovered/Resolved with Sequelae]
  - Gamma-glutamyltransferase increased [Not Recovered/Not Resolved]
  - Diarrhoea [Recovered/Resolved]

NARRATIVE: CASE EVENT DATE: 20181220
